FAERS Safety Report 6806350-3 (Version None)
Quarter: 2010Q2

REPORT INFORMATION
  Report Type: 
  Country: None (occurrence: None)
  Receive Date: 20100629
  Receipt Date: 20080517
  Transmission Date: 20101027
  Serious: No
  Sender: FDA-Public Use
  Company Number: US-PFIZER INC-2008005553

PATIENT
  Sex: Female

DRUGS (1)
  1. ZYVOX [Suspect]
     Route: 042
     Dates: start: 20080116, end: 20080116

REACTIONS (2)
  - INFUSION SITE EXTRAVASATION [None]
  - INJECTION SITE CYST [None]
